FAERS Safety Report 9222054 (Version 1)
Quarter: 2013Q2

REPORT INFORMATION
  Report Type: Spontaneous
  Country: US (occurrence: US)
  Receive Date: 20130410
  Receipt Date: 20130410
  Transmission Date: 20140414
  Serious: No
  Sender: FDA-Public Use
  Company Number: US-PFIZER INC-2013112390

PATIENT
  Age: 61 Year
  Sex: Female
  Weight: 95.24 kg

DRUGS (4)
  1. CHANTIX [Suspect]
     Indication: SMOKING CESSATION THERAPY
     Dosage: 0.5 MG, 1X/DAY
     Route: 048
  2. CHANTIX [Suspect]
     Dosage: UNK
     Route: 048
  3. CHANTIX [Suspect]
     Dosage: 0.5 MG, 1X/DAY
     Route: 048
     Dates: start: 201301
  4. CHANTIX [Suspect]
     Dosage: UNK
     Route: 048

REACTIONS (3)
  - Bladder disorder [Unknown]
  - Urinary incontinence [Unknown]
  - Therapeutic response unexpected [Unknown]
